FAERS Safety Report 4353001-6 (Version None)
Quarter: 2004Q2

REPORT INFORMATION
  Report Type: 
  Country: None (occurrence: None)
  Receive Date: 20040430
  Receipt Date: 20040325
  Transmission Date: 20050107
  Serious: No
  Sender: FDA-Public Use
  Company Number: 205534

PATIENT
  Age: 38 Year
  Sex: Male
  Weight: 93 kg

DRUGS (7)
  1. XOLAIR [Suspect]
     Indication: ASTHMA
     Dosage: 300 MG, Q2W, SUBCUTANEOUS
     Route: 058
     Dates: start: 20040309
  2. NEXIUM [Concomitant]
  3. FLONASE [Concomitant]
  4. ADVAIR DISKUS [Concomitant]
  5. ALBUTEROLO (ALBUTEROL, ALBUTEROL SULFATE) [Concomitant]
  6. VENTOLIN INHALER (ALBUTEROL SULFATE, ALBUTEROL) [Concomitant]
  7. PREDNISONE [Concomitant]

REACTIONS (1)
  - INFLUENZA LIKE ILLNESS [None]
